FAERS Safety Report 9524060 (Version 1)
Quarter: 2013Q3

REPORT INFORMATION
  Report Type: Spontaneous
  Country: US (occurrence: None)
  Receive Date: 20130912
  Receipt Date: 20130912
  Transmission Date: 20140515
  Serious: Yes (Hospitalization)
  Sender: FDA-Public Use
  Company Number: None

PATIENT
  Age: 60 Year
  Sex: Male
  Weight: 86.4 kg

DRUGS (1)
  1. LISINOPRIL [Suspect]
     Indication: HYPERTENSION
     Dosage: 20 MG EVERY DAY PO?~11/04/2009 THRU ~06/11/2013
     Route: 048
     Dates: start: 20091104, end: 20130611

REACTIONS (6)
  - Swollen tongue [None]
  - Local swelling [None]
  - Pharyngeal oedema [None]
  - Dysphagia [None]
  - Speech disorder [None]
  - Emotional distress [None]
